FAERS Safety Report 4768526-9 (Version None)
Quarter: 2005Q3

REPORT INFORMATION
  Report Type: 
  Country: None (occurrence: None)
  Receive Date: 20050913
  Receipt Date: 20050901
  Transmission Date: 20060218
  Serious: Yes (Other)
  Sender: FDA-Public Use
  Company Number: 2005111712

PATIENT
  Age: 53 Year
  Sex: Female
  Weight: 86.1834 kg

DRUGS (7)
  1. NEURONTIN [Suspect]
     Indication: NECK PAIN
     Dosage: 1800 MG (600 MG, 3 IN 1 D), ORAL
     Route: 048
     Dates: start: 20031203, end: 20050804
  2. NEURONTIN [Suspect]
     Indication: NEUROPATHIC PAIN
     Dosage: 1800 MG (600 MG, 3 IN 1 D), ORAL
     Route: 048
     Dates: start: 20031203, end: 20050804
  3. DARVON [Concomitant]
  4. ADDERALL 10 [Concomitant]
  5. PROZAC [Concomitant]
  6. MAXZIDE [Concomitant]
  7. XANAX [Concomitant]

REACTIONS (9)
  - DISTURBANCE IN ATTENTION [None]
  - FATIGUE [None]
  - FEELING ABNORMAL [None]
  - INSOMNIA [None]
  - LETHARGY [None]
  - LOSS OF CONSCIOUSNESS [None]
  - PAIN [None]
  - SYNCOPE [None]
  - TREMOR [None]
